FAERS Safety Report 17580281 (Version 1)
Quarter: 2020Q1

REPORT INFORMATION
  Report Type: Spontaneous
  Country: TR (occurrence: TR)
  Receive Date: 20200325
  Receipt Date: 20200325
  Transmission Date: 20200409
  Serious: Yes (Death)
  Sender: FDA-Public Use
  Company Number: TR-009507513-2003TUR008599

PATIENT
  Age: 14 Year
  Sex: Male

DRUGS (3)
  1. CASPOFUNGIN ACETATE. [Suspect]
     Active Substance: CASPOFUNGIN ACETATE
     Indication: FUNGAL INFECTION
     Dosage: UNK
  2. NOXAFIL [Suspect]
     Active Substance: POSACONAZOLE
     Indication: FUNGAL INFECTION
     Dosage: 4X200 MG (ALSO REPORTED AS 800MG/DAY)
     Route: 048
  3. AMPHOTERICIN B (+) CHOLESTEROL (+) DISTEAROYLPHOSPHATIDYLGLYCEROL (+) [Suspect]
     Active Substance: AMPHOTERICIN B\CHOLESTEROL
     Indication: FUNGAL INFECTION
     Dosage: UNK

REACTIONS (1)
  - Therapy non-responder [Fatal]
